FAERS Safety Report 5097047-1 (Version None)
Quarter: 2006Q3

REPORT INFORMATION
  Report Type: 
  Country: None (occurrence: None)
  Receive Date: 20060901
  Receipt Date: 20060822
  Transmission Date: 20061208
  Serious: Yes (Hospitalization)
  Sender: FDA-Public Use
  Company Number: 2006102711

PATIENT
  Age: 62 Year
  Sex: Male

DRUGS (7)
  1. REVATIO [Suspect]
     Indication: PULMONARY HYPERTENSION
     Dosage: 40 MG (20 MG, 2 IN 1 D), ORAL
     Route: 048
     Dates: start: 20060601, end: 20060701
  2. INSULIN [Concomitant]
  3. ENALAPRIL MALEATE [Concomitant]
  4. TORSEMIDE [Concomitant]
  5. XIPAMIDE (XIPAMIDE) [Concomitant]
  6. DIPYRONE TAB [Concomitant]
  7. VIAGRA [Concomitant]

REACTIONS (5)
  - BALANCE DISORDER [None]
  - DRUG TOLERANCE DECREASED [None]
  - HEADACHE [None]
  - MYALGIA [None]
  - VOMITING [None]
